FAERS Safety Report 13303989 (Version 1)
Quarter: 2017Q1

REPORT INFORMATION
  Report Type: Spontaneous
  Country: US (occurrence: US)
  Receive Date: 20170307
  Receipt Date: 20170307
  Transmission Date: 20170428
  Serious: Yes (Hospitalization, Other)
  Sender: FDA-Public Use
  Company Number: US-ELI_LILLY_AND_COMPANY-US201608004439

PATIENT
  Age: 39 Year
  Sex: Female

DRUGS (1)
  1. CYMBALTA [Suspect]
     Active Substance: DULOXETINE HYDROCHLORIDE
     Indication: PRODUCT USED FOR UNKNOWN INDICATION
     Dosage: UNK, UNKNOWN
     Route: 065
     Dates: start: 201401

REACTIONS (11)
  - Fatigue [Unknown]
  - White blood cell count increased [Unknown]
  - Drug withdrawal syndrome [Unknown]
  - Seizure [Unknown]
  - Hallucination, auditory [Unknown]
  - Vomiting [Unknown]
  - Headache [Unknown]
  - Neutrophil count increased [Unknown]
  - Suicidal ideation [Unknown]
  - Nausea [Unknown]
  - Lethargy [Unknown]

NARRATIVE: CASE EVENT DATE: 20140304
